FAERS Safety Report 8069622-3 (Version None)
Quarter: 2012Q1

REPORT INFORMATION
  Report Type: 
  Country: None (occurrence: None)
  Receive Date: 20120125
  Receipt Date: 20120119
  Transmission Date: 20120608
  Serious: Yes (Hospitalization)
  Sender: FDA-Public Use
  Company Number: US-BAYER-2011-110450

PATIENT
  Age: 47 Year
  Sex: Male

DRUGS (2)
  1. NEXAVAR [Suspect]
     Indication: THYROID CANCER METASTATIC
     Dosage: UNK
     Route: 048
     Dates: start: 20111012
  2. TEMSIROLIMUS [Suspect]
     Indication: THYROID CANCER
     Dosage: UNK
     Route: 042
     Dates: start: 20111012

REACTIONS (5)
  - HAEMOPTYSIS [None]
  - PNEUMONITIS [None]
  - PULMONARY HAEMORRHAGE [None]
  - PAIN [None]
  - DEEP VEIN THROMBOSIS [None]
